FAERS Safety Report 9194104 (Version 1)
Quarter: 2013Q1

REPORT INFORMATION
  Report Type: Spontaneous
  Country: FR (occurrence: FR)
  Receive Date: 20130327
  Receipt Date: 20130327
  Transmission Date: 20140127
  Serious: Yes (Hospitalization, Other)
  Sender: FDA-Public Use
  Company Number: FR-TEVA-393827ISR

PATIENT
  Age: 66 None
  Sex: Male

DRUGS (6)
  1. OXALIPLATIN [Suspect]
     Indication: METASTASES TO LIVER
     Dosage: THE 3RD ADMINISTRATION
     Route: 013
     Dates: start: 20130114, end: 20130114
  2. OXALIPLATIN [Suspect]
     Route: 013
     Dates: start: 20121121, end: 20121122
  3. OXALIPLATIN [Suspect]
     Route: 013
     Dates: start: 20121212, end: 20121213
  4. TOMUDEX [Suspect]
     Indication: METASTASES TO LIVER
     Dosage: THE 3RD ADMINISTRATION
     Route: 013
     Dates: start: 20130114, end: 20130114
  5. TOMUDEX [Suspect]
     Route: 013
     Dates: start: 20121121, end: 20121122
  6. TOMUDEX [Suspect]
     Route: 013
     Dates: start: 20121212, end: 20121213

REACTIONS (8)
  - Diarrhoea [Recovered/Resolved]
  - Vomiting [Recovered/Resolved]
  - Malaise [Recovered/Resolved]
  - Gastroenteritis [Recovered/Resolved]
  - Decreased appetite [Recovered/Resolved]
  - Weight decreased [Recovered/Resolved]
  - Nausea [Recovered/Resolved]
  - Asthenia [Recovered/Resolved]
